FAERS Safety Report 7334410-X (Version None)
Quarter: 2011Q1

REPORT INFORMATION
  Report Type: 
  Country: None (occurrence: None)
  Receive Date: 20110307
  Receipt Date: 20110223
  Transmission Date: 20110831
  Serious: Yes (Other)
  Sender: FDA-Public Use
  Company Number: PHHY2011US15141

PATIENT
  Sex: Male

DRUGS (1)
  1. GILENYA [Suspect]
     Indication: MULTIPLE SCLEROSIS
     Dosage: 0.5 MG, QD
     Route: 048
     Dates: start: 20101021, end: 20110215

REACTIONS (5)
  - UNRESPONSIVE TO STIMULI [None]
  - INFECTION [None]
  - DYSPHAGIA [None]
  - FLUID INTAKE REDUCED [None]
  - APHAGIA [None]
